FAERS Safety Report 9118751 (Version 2)
Quarter: 2013Q2

REPORT INFORMATION
  Report Type: Report from Study
  Country: NL (occurrence: NL)
  Receive Date: 20130226
  Receipt Date: 20130422
  Transmission Date: 20140414
  Serious: Yes (Other)
  Sender: FDA-Public Use
  Company Number: PHHY2013NL018368

PATIENT
  Sex: Female

DRUGS (9)
  1. ZOMETA [Suspect]
     Indication: METASTASES TO BONE
     Dosage: 4 MG/100ML ONCE PER 28 DAYS
     Route: 042
  2. ZOMETA [Suspect]
     Dosage: 4 MG/100ML ONCE PER 28 DAYS
     Route: 042
     Dates: start: 20110427
  3. ZOMETA [Suspect]
     Dosage: 4 MG/100ML ONCE PER 28 DAYS
     Route: 042
     Dates: start: 201105
  4. ZOMETA [Suspect]
     Dosage: 4 MG/100ML ONCE PER 28 DAYS
     Route: 042
     Dates: start: 20130109
  5. ZOMETA [Suspect]
     Dosage: 4 MG/100ML ONCE PER 28 DAYS
     Route: 042
     Dates: start: 20130206
  6. XELODA [Concomitant]
     Dosage: 1650 MG, 2DD1/ CYCLE OF 3 WEEKS
  7. PARACETAMOL [Concomitant]
     Dosage: 1000 MG, 3DD1000MG
  8. PROPRANOLOL [Concomitant]
     Dosage: 10 MG, WHEN NEEDED
  9. CALCICHEW D3 [Concomitant]

REACTIONS (3)
  - Osteonecrosis of jaw [Unknown]
  - Bone lesion [Unknown]
  - Abscess jaw [Unknown]
